FAERS Safety Report 18352248 (Version 2)
Quarter: 2020Q4

REPORT INFORMATION
  Report Type: Spontaneous
  Country: FR (occurrence: FR)
  Receive Date: 20201006
  Receipt Date: 20201019
  Transmission Date: 20210114
  Serious: Yes (Death, Other)
  Sender: FDA-Public Use
  Company Number: FR-PFIZER INC-2020384021

PATIENT
  Age: 85 Year
  Sex: Female

DRUGS (2)
  1. XANAX [Suspect]
     Active Substance: ALPRAZOLAM
     Dosage: 0.5 DF
     Route: 048
     Dates: end: 20200821
  2. PRADAXA [Suspect]
     Active Substance: DABIGATRAN ETEXILATE MESYLATE
     Indication: ATRIAL FIBRILLATION
     Dosage: 220 MG, 1X/DAY
     Route: 048
     Dates: end: 20200821

REACTIONS (3)
  - Coma [Fatal]
  - Rectal haemorrhage [Unknown]
  - Blood loss anaemia [Fatal]

NARRATIVE: CASE EVENT DATE: 20200821
